FAERS Safety Report 5469504-7 (Version None)
Quarter: 2007Q3

REPORT INFORMATION
  Report Type: 
  Country: None (occurrence: None)
  Receive Date: 20070927
  Receipt Date: 20070924
  Transmission Date: 20080115
  Serious: Yes (Other)
  Sender: FDA-Public Use
  Company Number: A0683912A

PATIENT
  Sex: Female

DRUGS (1)
  1. SERETIDE [Suspect]
     Indication: ASTHMA
     Dates: start: 20070401

REACTIONS (1)
  - ABORTION [None]
